FAERS Safety Report 26169714 (Version 1)
Quarter: 2025Q4

REPORT INFORMATION
  Report Type: Spontaneous
  Country: US (occurrence: US)
  Receive Date: 20251217
  Receipt Date: 20251217
  Transmission Date: 20260117
  Serious: No
  Sender: BLUEPRINT MEDICINES
  Company Number: US-Blueprint Medicines Corporation-2025-AER-02711

PATIENT
  Age: 50 Year
  Sex: Male

DRUGS (1)
  1. AYVAKIT [Suspect]
     Active Substance: AVAPRITINIB
     Indication: Mastocytoma
     Route: 048
     Dates: start: 20240621

REACTIONS (6)
  - Mass [Unknown]
  - Back injury [Unknown]
  - Intervertebral disc protrusion [Unknown]
  - Illness [Recovering/Resolving]
  - Immune system disorder [Unknown]
  - Asthma [Unknown]
